FAERS Safety Report 25818677 (Version 2)
Quarter: 2025Q4

REPORT INFORMATION
  Report Type: Report from Study
  Country: GB (occurrence: GB)
  Receive Date: 20250918
  Receipt Date: 20251016
  Transmission Date: 20260118
  Serious: Yes (Other)
  Sender: AMGEN
  Company Number: GB-AMGEN-GBRSL2025182738

PATIENT
  Age: 61 Year
  Sex: Female

DRUGS (1)
  1. WEZLANA [Suspect]
     Active Substance: USTEKINUMAB-AUUB
     Indication: Crohn^s disease
     Dosage: 90 MILLIGRAM, Q8WK
     Route: 058
     Dates: start: 20250424

REACTIONS (6)
  - Syncope [Unknown]
  - Migraine [Unknown]
  - Drug ineffective [Unknown]
  - Myalgia [Unknown]
  - Arthralgia [Unknown]
  - Urinary tract infection [Unknown]

NARRATIVE: CASE EVENT DATE: 20240709
